FAERS Safety Report 10098366 (Version 1)
Quarter: 2014Q2

REPORT INFORMATION
  Report Type: Spontaneous
  Country: GB (occurrence: None)
  Receive Date: 20140421
  Receipt Date: 20140421
  Transmission Date: 20141212
  Serious: Yes (Death)
  Sender: FDA-Public Use
  Company Number: 2298465

PATIENT
  Age: 75 Year
  Sex: Male

DRUGS (7)
  1. DEXMEDETOMIDINE HYDROCHLORIDE [Suspect]
     Indication: SEDATION
     Route: 042
     Dates: start: 20140313, end: 20140325
  2. ALFENTANIL [Concomitant]
  3. CLARITHYROMYCIN [Concomitant]
  4. DALTEPARIN [Concomitant]
  5. MEROPENEM [Concomitant]
  6. PROPOFOL [Concomitant]
  7. RANITIDINE [Concomitant]

REACTIONS (1)
  - Cardiac arrest [None]
